FAERS Safety Report 7739746-6 (Version None)
Quarter: 2011Q3

REPORT INFORMATION
  Report Type: 
  Country: None (occurrence: None)
  Receive Date: 20110909
  Receipt Date: 20110902
  Transmission Date: 20111222
  Serious: Yes (Hospitalization)
  Sender: FDA-Public Use
  Company Number: JP-SANOFI-AVENTIS-2011SA048069

PATIENT
  Age: 86 Year
  Sex: Male
  Weight: 48 kg

DRUGS (15)
  1. RIFAMPICIN [Suspect]
     Indication: PULMONARY TUBERCULOSIS
     Route: 048
     Dates: start: 20091201
  2. GOSERELIN [Concomitant]
     Dosage: EVERY 3 MONTHS
     Route: 058
  3. LEVOFLOXACIN [Concomitant]
  4. RIFAMPICIN [Suspect]
     Route: 065
  5. ISONIAZID [Concomitant]
     Indication: PULMONARY TUBERCULOSIS
     Route: 048
     Dates: start: 20091201
  6. ISONIAZID [Concomitant]
  7. ZOPICLONE [Concomitant]
     Route: 048
  8. ISONIAZID [Concomitant]
  9. ETHAMBUTOL HCL [Concomitant]
  10. ETHAMBUTOL HCL [Concomitant]
  11. AMLODIPINE [Concomitant]
     Route: 048
  12. STREPTOMYCIN [Concomitant]
  13. ETHAMBUTOL HCL [Concomitant]
     Indication: PULMONARY TUBERCULOSIS
     Route: 048
     Dates: start: 20091201
  14. ISOSORBIDE DINITRATE [Concomitant]
     Route: 048
  15. DILTIAZEM [Concomitant]
     Route: 048

REACTIONS (6)
  - PYREXIA [None]
  - PLEURAL EFFUSION [None]
  - PNEUMONITIS [None]
  - DIARRHOEA [None]
  - FATIGUE [None]
  - RASH [None]
